FAERS Safety Report 13958578 (Version 1)
Quarter: 2017Q3

REPORT INFORMATION
  Report Type: Spontaneous
  Country: US (occurrence: US)
  Receive Date: 20170911
  Receipt Date: 20170911
  Transmission Date: 20171128
  Serious: No
  Sender: FDA-Public Use
  Company Number: US-ROCHE-1869136

PATIENT

DRUGS (1)
  1. TECENTRIQ [Suspect]
     Active Substance: ATEZOLIZUMAB
     Indication: METASTATIC CARCINOMA OF THE BLADDER
     Dosage: ONGOING;UNKNOWN
     Route: 065
     Dates: start: 201612

REACTIONS (1)
  - Urethral pain [Recovered/Resolved]

NARRATIVE: CASE EVENT DATE: 201612
